FAERS Safety Report 14685990 (Version 1)
Quarter: 2018Q1

REPORT INFORMATION
  Report Type: Spontaneous
  Country: US (occurrence: US)
  Receive Date: 20180326
  Receipt Date: 20180326
  Transmission Date: 20180509
  Serious: Yes (Other)
  Sender: FDA-Public Use
  Company Number: None

PATIENT
  Age: 92 Year
  Sex: Female
  Weight: 63 kg

DRUGS (1)
  1. AFLIBERCEPT [Suspect]
     Active Substance: AFLIBERCEPT
     Indication: CHOROIDAL NEOVASCULARISATION
     Dosage: ?          OTHER FREQUENCY:ONCE EVERY 6 WEEKS;OTHER ROUTE:INTRAVITREAL?

REACTIONS (3)
  - Vitreous disorder [None]
  - Visual acuity reduced [None]
  - Eye inflammation [None]

NARRATIVE: CASE EVENT DATE: 20180226
